FAERS Safety Report 9532372 (Version 1)
Quarter: 2013Q3

REPORT INFORMATION
  Report Type: Spontaneous
  Country: US (occurrence: None)
  Receive Date: 20130916
  Receipt Date: 20130916
  Transmission Date: 20140515
  Serious: Yes (Other)
  Sender: FDA-Public Use
  Company Number: ACO_38373_2013

PATIENT
  Age: 58 Year
  Sex: Female

DRUGS (7)
  1. AMPYRA [Suspect]
     Indication: MULTIPLE SCLEROSIS
     Route: 048
     Dates: start: 20130802
  2. ANTIVERT (MECLOZINE HYDROCHLORIDE) [Concomitant]
  3. KLONOPIN (CLONAZEPAM) (TABLETS) [Concomitant]
  4. ULTRAM (TRAMADOL HYDROCHLORIDE) [Concomitant]
  5. TRAZODONE (TRAZODONE) [Concomitant]
  6. AVONEX (INTERFERON BETA-1A) [Concomitant]
  7. AMANTADINE (AMANTADINE HYDROCHLORIDE) [Concomitant]

REACTIONS (4)
  - Cardiac flutter [None]
  - Heart rate increased [None]
  - Anxiety [None]
  - Nervousness [None]
